FAERS Safety Report 7654004-6 (Version None)
Quarter: 2011Q3

REPORT INFORMATION
  Report Type: 
  Country: None (occurrence: None)
  Receive Date: 20110803
  Receipt Date: 20110720
  Transmission Date: 20111222
  Serious: Yes (Other)
  Sender: FDA-Public Use
  Company Number: PHHY2011JP65672

PATIENT
  Age: 53 Year
  Sex: Female

DRUGS (1)
  1. DIOVAN [Suspect]
     Dosage: 80 MG, QD (80 MG ONCE DAILY )
     Route: 048
     Dates: start: 20050401, end: 20090901

REACTIONS (1)
  - INTERSTITIAL LUNG DISEASE [None]
